FAERS Safety Report 23331574 (Version 1)
Quarter: 2023Q4

REPORT INFORMATION
  Report Type: Spontaneous
  Country: US (occurrence: US)
  Receive Date: 20231222
  Receipt Date: 20231222
  Transmission Date: 20240110
  Serious: No
  Sender: FDA-Public Use
  Company Number: US-009507513-2312USA008401

PATIENT
  Age: 30 Year
  Sex: Female

DRUGS (1)
  1. CUBICIN [Suspect]
     Active Substance: DAPTOMYCIN
     Indication: Vascular device infection
     Dosage: UNK. FOR 4 WEEKS

REACTIONS (1)
  - Product use in unapproved indication [Unknown]
